FAERS Safety Report 14187112 (Version 1)
Quarter: 2017Q4

REPORT INFORMATION
  Report Type: Not Available
  Country: None (occurrence: US)
  Receive Date: 20171114
  Receipt Date: 20171114
  Transmission Date: 20180321
  Serious: No
  Sender: FDA-Public Use
  Company Number: US-AKORN-68344

PATIENT
  Sex: Female

DRUGS (1)
  1. TROPICAMIDE 1% OPHTHALMIC SOLUTION, USP [Suspect]
     Active Substance: TROPICAMIDE

REACTIONS (2)
  - Eye irritation [None]
  - Dermatitis contact [Not Recovered/Not Resolved]
